FAERS Safety Report 6135617-X (Version None)
Quarter: 2009Q1

REPORT INFORMATION
  Report Type: 
  Country: None (occurrence: None)
  Receive Date: 20090327
  Receipt Date: 20080912
  Transmission Date: 20090719
  Serious: No
  Sender: FDA-Public Use
  Company Number: GB-ASTRAZENECA-2003UW07964

PATIENT
  Sex: Female

DRUGS (2)
  1. ZESTRIL [Suspect]
     Route: 048
  2. ZETIA [Suspect]

REACTIONS (3)
  - BLOOD CHOLESTEROL INCREASED [None]
  - FATIGUE [None]
  - WRONG DRUG ADMINISTERED [None]
